FAERS Safety Report 20749200 (Version 1)
Quarter: 2022Q2

REPORT INFORMATION
  Report Type: Spontaneous
  Country: US (occurrence: None)
  Receive Date: 20220426
  Receipt Date: 20220426
  Transmission Date: 20220721
  Serious: No
  Sender: FDA-Public Use
  Company Number: US-NESTLEHEALTHSCIENCE-2021000030

PATIENT
  Age: 11 Year
  Sex: Female

DRUGS (1)
  1. VIOKACE [Suspect]
     Active Substance: PANCRELIPASE AMYLASE\PANCRELIPASE LIPASE\PANCRELIPASE PROTEASE
     Indication: Product used for unknown indication

REACTIONS (2)
  - Off label use [Unknown]
  - No adverse event [Unknown]
